FAERS Safety Report 23591729 (Version 1)
Quarter: 2024Q1

REPORT INFORMATION
  Report Type: Spontaneous
  Country: TR (occurrence: TR)
  Receive Date: 20240304
  Receipt Date: 20240304
  Transmission Date: 20240410
  Serious: Yes (Hospitalization, Other)
  Sender: FDA-Public Use
  Company Number: TR-INDIVIOR US-INDV-143339-2024

PATIENT
  Sex: Male
  Weight: 2.32 kg

DRUGS (2)
  1. SUBOXONE [Suspect]
     Active Substance: BUPRENORPHINE HYDROCHLORIDE\NALOXONE HYDROCHLORIDE
     Indication: Drug dependence
     Dosage: RANGING FROM 24 MG TO 32 MG
     Route: 064
  2. NICOTINE [Suspect]
     Active Substance: NICOTINE
     Indication: Product used for unknown indication
     Dosage: UNK
     Route: 064

REACTIONS (4)
  - Low birth weight baby [Unknown]
  - Drug withdrawal syndrome neonatal [Unknown]
  - Vitamin D deficiency [Unknown]
  - Foetal exposure during pregnancy [Recovered/Resolved]
